FAERS Safety Report 11047101 (Version 3)
Quarter: 2015Q2

REPORT INFORMATION
  Report Type: Report from Study
  Country: CZ (occurrence: CZ)
  Receive Date: 20150420
  Receipt Date: 20150427
  Transmission Date: 20150821
  Serious: Yes (Death, Hospitalization)
  Sender: FDA-Public Use
  Company Number: CZ-B.I. PHARMACEUTICALS,INC./RIDGEFIELD-2015-BI-18920BI

PATIENT
  Age: 76 Year
  Sex: Male
  Weight: 55 kg

DRUGS (30)
  1. TENSIOMIN [Suspect]
     Active Substance: CAPTOPRIL
     Indication: HYPERTENSION
     Dosage: 25 MG
     Route: 048
     Dates: start: 20150313, end: 20150313
  2. BUSCOPAN [Suspect]
     Active Substance: BUTYLSCOPOLAMINE BROMIDE
     Indication: ENDOSCOPIC RETROGRADE CHOLANGIOPANCREATOGRAPHY
     Route: 042
     Dates: start: 20150313, end: 20150325
  3. BI 655075 [Suspect]
     Active Substance: IDARUCIZUMAB
     Indication: COAGULATION TIME SHORTENED
     Dosage: FORMULATION: INJECTION;DOSE PER APPLICATION: 2X 2.5 MG;
     Route: 042
     Dates: start: 20150313, end: 20150313
  4. ZOFRAN [Suspect]
     Active Substance: ONDANSETRON HYDROCHLORIDE
     Indication: NAUSEA
     Route: 042
     Dates: end: 20150227
  5. TRAMAL [Suspect]
     Active Substance: TRAMADOL
     Indication: PAIN
     Dosage: ROUTE: ORAL
     Route: 042
     Dates: end: 20150330
  6. KALNORMIN [Suspect]
     Active Substance: POTASSIUM CHLORIDE
     Indication: HYPOKALAEMIA
     Dosage: 3 G
     Route: 048
     Dates: start: 20150315, end: 20150315
  7. VEROSPIRON [Suspect]
     Active Substance: SPIRONOLACTONE
     Indication: HYPERTENSION
     Dosage: 25 MG
     Route: 048
     Dates: end: 20150410
  8. KREON [Suspect]
     Active Substance: PANCRELIPASE
     Indication: PANCREATIC CARCINOMA
     Route: 048
     Dates: start: 20150316, end: 20150410
  9. NOVALGIN [Suspect]
     Active Substance: METAMIZOLE SODIUM
     Indication: PAIN
     Route: 042
     Dates: end: 20150325
  10. PRADAXA [Suspect]
     Active Substance: DABIGATRAN ETEXILATE MESYLATE
     Dosage: 220 MG
     Route: 048
     Dates: start: 20150318, end: 20150406
  11. BETALOC [Suspect]
     Active Substance: METOPROLOL TARTRATE
     Indication: HYPERTENSION
     Dosage: 50 MG
     Route: 048
     Dates: end: 20150406
  12. FURON [Suspect]
     Active Substance: FUROSEMIDE
     Indication: CARDIAC FAILURE CHRONIC
  13. DIGOXIN. [Suspect]
     Active Substance: DIGOXIN
     Indication: CARDIAC FAILURE CHRONIC
     Dosage: 0.125 MG
     Route: 048
     Dates: end: 20150410
  14. BUSCOPAN [Suspect]
     Active Substance: BUTYLSCOPOLAMINE BROMIDE
     Indication: ANALGESIC THERAPY
  15. LIDOCAIN [Suspect]
     Active Substance: LIDOCAINE
     Indication: ENDOSCOPIC RETROGRADE CHOLANGIOPANCREATOGRAPHY
     Dosage: FORMULATION: SPRAY; ROUTE: TOPICAL (THROAT)
     Route: 050
     Dates: start: 20150313, end: 20150313
  16. ALGIFEN (FENPIVERINIUM BROMIDE\METAMIZOLE SODIUM\PITOFENONE HYDROCHLORIDE) [Suspect]
     Active Substance: FENPIVERINIUM BROMIDE\METAMIZOLE SODIUM\PITOFENONE HYDROCHLORIDE
     Indication: PAIN
     Dosage: 20 ANZ
     Route: 048
     Dates: start: 20150317, end: 20150317
  17. ZALDIAR [Suspect]
     Active Substance: ACETAMINOPHEN\TRAMADOL HYDROCHLORIDE
     Indication: PAIN
     Route: 048
     Dates: end: 20150330
  18. FURON [Suspect]
     Active Substance: FUROSEMIDE
     Indication: HYPERTENSION
     Dosage: 40 MG
     Route: 048
     Dates: end: 20150410
  19. VEROSPIRON [Suspect]
     Active Substance: SPIRONOLACTONE
     Indication: CARDIAC FAILURE CHRONIC
  20. PRESTARIUM NEO COMBI [Suspect]
     Active Substance: INDAPAMIDE\PERINDOPRIL ARGININE
     Indication: HYPERTENSION
     Dosage: 5 MG
     Route: 048
     Dates: end: 20150410
  21. TRAMAL [Suspect]
     Active Substance: TRAMADOL
     Route: 048
     Dates: end: 20150330
  22. MIDAZOLAM [Suspect]
     Active Substance: MIDAZOLAM\MIDAZOLAM HYDROCHLORIDE
     Indication: ENDOSCOPIC RETROGRADE CHOLANGIOPANCREATOGRAPHY
     Dosage: 2.5 MG
     Route: 042
     Dates: start: 20150313, end: 20150313
  23. ESPUMISAN [Suspect]
     Active Substance: DIMETHICONE
     Indication: ABDOMINAL PAIN
     Dosage: 240 MG
     Route: 048
     Dates: start: 20150316, end: 20150410
  24. LEUKOVORIN [Suspect]
     Active Substance: LEUCOVORIN SODIUM
     Indication: CHEMOTHERAPY
     Route: 042
     Dates: start: 20150102, end: 20150227
  25. FRAXIPARINE [Suspect]
     Active Substance: NADROPARIN CALCIUM
     Indication: ATRIAL FIBRILLATION
     Dosage: 0.3 ML
     Route: 058
     Dates: start: 20150314, end: 20150317
  26. FENTANYL. [Suspect]
     Active Substance: FENTANYL
     Indication: ENDOSCOPIC RETROGRADE CHOLANGIOPANCREATOGRAPHY
     Dosage: 2 ML
     Route: 042
     Dates: start: 20150313, end: 20150313
  27. GEMZAR [Suspect]
     Active Substance: GEMCITABINE HYDROCHLORIDE
     Indication: CHEMOTHERAPY
     Route: 042
     Dates: start: 20130815, end: 20141218
  28. PRADAXA [Suspect]
     Active Substance: DABIGATRAN ETEXILATE MESYLATE
     Indication: ATRIAL FIBRILLATION
     Dosage: 220 MG
     Route: 048
     Dates: start: 201501, end: 20150313
  29. FLUOROURACIL. [Suspect]
     Active Substance: FLUOROURACIL
     Indication: CHEMOTHERAPY
     Route: 042
     Dates: start: 20150102, end: 20150227
  30. DOLFORIN [Suspect]
     Active Substance: FENTANYL
     Indication: PAIN
     Dosage: FORMULATION: PATCHES
     Route: 062
     Dates: start: 20150331, end: 20150406

REACTIONS (3)
  - Pancreatic carcinoma [Fatal]
  - Renal failure [Unknown]
  - Concomitant disease progression [None]

NARRATIVE: CASE EVENT DATE: 20150319
